FAERS Safety Report 5414839-7 (Version None)
Quarter: 2007Q3

REPORT INFORMATION
  Report Type: 
  Country: None (occurrence: None)
  Receive Date: 20070815
  Receipt Date: 20070808
  Transmission Date: 20080115
  Serious: Yes (Hospitalization)
  Sender: FDA-Public Use
  Company Number: PHBS2007JP12910

PATIENT
  Age: 51 Year
  Sex: Male

DRUGS (2)
  1. TEGRETOL [Suspect]
     Indication: TEMPORAL LOBE EPILEPSY
     Route: 048
  2. ZONISAMIDE [Concomitant]
     Indication: TEMPORAL LOBE EPILEPSY
     Route: 065

REACTIONS (7)
  - ANTICONVULSANT DRUG LEVEL INCREASED [None]
  - BLOOD PRESSURE DIASTOLIC DECREASED [None]
  - GLASGOW COMA SCALE ABNORMAL [None]
  - INTENTIONAL OVERDOSE [None]
  - LOSS OF CONSCIOUSNESS [None]
  - RESPIRATORY RATE DECREASED [None]
  - STATUS EPILEPTICUS [None]
